FAERS Safety Report 16043320 (Version 5)
Quarter: 2019Q3

REPORT INFORMATION
  Report Type: Report from Study
  Country: CA (occurrence: CA)
  Receive Date: 20190306
  Receipt Date: 20190715
  Transmission Date: 20191004
  Serious: Yes (Other)
  Sender: FDA-Public Use
  Company Number: CA-JNJFOC-20190216578

PATIENT
  Age: 42 Year
  Sex: Female
  Weight: 80 kg

DRUGS (1)
  1. REMICADE [Suspect]
     Active Substance: INFLIXIMAB
     Indication: CROHN^S DISEASE
     Dosage: STRENGTH = 100 MG?ALSO REPORTED AS 5MG/KG
     Route: 042
     Dates: start: 20180619

REACTIONS (8)
  - Paraesthesia oral [Unknown]
  - Pain in extremity [Recovered/Resolved]
  - Feeling abnormal [Recovering/Resolving]
  - Swelling face [Unknown]
  - Infusion related reaction [Unknown]
  - Oedema peripheral [Recovered/Resolved]
  - Angina pectoris [Recovered/Resolved]
  - Pyrexia [Unknown]

NARRATIVE: CASE EVENT DATE: 20190212
